FAERS Safety Report 10682303 (Version 5)
Quarter: 2018Q3

REPORT INFORMATION
  Report Type: Report from Study
  Country: US (occurrence: US)
  Receive Date: 20141230
  Receipt Date: 20180705
  Transmission Date: 20181010
  Serious: Yes (Other)
  Sender: FDA-Public Use
  Company Number: US-SA-2014SA125889

PATIENT
  Age: 64 Year
  Sex: Male

DRUGS (3)
  1. TERIFLUNOMIDE [Suspect]
     Active Substance: TERIFLUNOMIDE
     Dosage: 14 MG,QD
     Route: 048
     Dates: start: 20140325
  2. AMLODIPINE [Concomitant]
     Active Substance: AMLODIPINE BESYLATE
     Dosage: 5 MG
  3. SULFAMETHOXAZOL SUS [Concomitant]

REACTIONS (6)
  - Rash [Unknown]
  - Cellulitis [Unknown]
  - Multiple sclerosis relapse [Recovered/Resolved]
  - Infection [Unknown]
  - White blood cell count decreased [Unknown]
  - Skin injury [Unknown]

NARRATIVE: CASE EVENT DATE: 2014
